FAERS Safety Report 6979004-0 (Version None)
Quarter: 2010Q3

REPORT INFORMATION
  Report Type: 
  Country: None (occurrence: None)
  Receive Date: 20100913
  Receipt Date: 20100909
  Transmission Date: 20110219
  Serious: Yes (Other)
  Sender: FDA-Public Use
  Company Number: FR-BRISTOL-MYERS SQUIBB COMPANY-15278096

PATIENT
  Age: 75 Year
  Sex: Female

DRUGS (1)
  1. TAXOL [Suspect]
     Route: 042

REACTIONS (2)
  - BALANCE DISORDER [None]
  - NEUROPATHY PERIPHERAL [None]
